FAERS Safety Report 7115767-1 (Version None)
Quarter: 2010Q4

REPORT INFORMATION
  Report Type: 
  Country: None (occurrence: None)
  Receive Date: 20101122
  Receipt Date: 20101104
  Transmission Date: 20110411
  Serious: Yes (Other)
  Sender: FDA-Public Use
  Company Number: DE-AMGEN-DEUSP2010003324

PATIENT

DRUGS (2)
  1. NEULASTA [Suspect]
     Indication: AGRANULOCYTOSIS
  2. NEUPOGEN [Suspect]
     Indication: AGRANULOCYTOSIS

REACTIONS (2)
  - BLOOD COUNT ABNORMAL [None]
  - WHITE BLOOD CELL COUNT DECREASED [None]
